FAERS Safety Report 5201218-0 (Version None)
Quarter: 2007Q1

REPORT INFORMATION
  Report Type: 
  Country: None (occurrence: None)
  Receive Date: 20070108
  Receipt Date: 20061226
  Transmission Date: 20070707
  Serious: Yes (Hospitalization)
  Sender: FDA-Public Use
  Company Number: PHHO2006ES17743

PATIENT
  Age: 48 Year
  Sex: Female

DRUGS (1)
  1. GLEEVEC [Suspect]
     Indication: CHRONIC MYELOID LEUKAEMIA
     Dosage: 400 MG, QD
     Route: 048
     Dates: start: 20060703, end: 20061030

REACTIONS (4)
  - ALVEOLITIS ALLERGIC [None]
  - DYSPNOEA [None]
  - LUNG INFILTRATION [None]
  - PYREXIA [None]
